FAERS Safety Report 12752785 (Version 1)
Quarter: 2016Q3

REPORT INFORMATION
  Report Type: Spontaneous
  Country: US (occurrence: US)
  Receive Date: 20160915
  Receipt Date: 20160915
  Transmission Date: 20161109
  Serious: No
  Sender: FDA-Public Use
  Company Number: US-ASTELLAS-2015US037328

PATIENT
  Sex: Male

DRUGS (1)
  1. XTANDI [Suspect]
     Active Substance: ENZALUTAMIDE
     Indication: PRODUCT USED FOR UNKNOWN INDICATION
     Dosage: 160 MG (4X 40 MG), ONCE DAILY
     Route: 048
     Dates: start: 20141107

REACTIONS (5)
  - Dizziness [Unknown]
  - Blood pressure increased [Unknown]
  - Headache [Unknown]
  - Abdominal pain [Unknown]
  - Pain [Unknown]
